FAERS Safety Report 14126113 (Version 5)
Quarter: 2017Q4

REPORT INFORMATION
  Report Type: Spontaneous
  Country: US (occurrence: US)
  Receive Date: 20171025
  Receipt Date: 20171221
  Transmission Date: 20180321
  Serious: Yes (Other)
  Sender: FDA-Public Use
  Company Number: US-BIOGEN-2017BI00475053

PATIENT
  Sex: Male

DRUGS (2)
  1. SOLU-MEDROL [Concomitant]
     Active Substance: METHYLPREDNISOLONE SODIUM SUCCINATE
     Indication: PRODUCT USED FOR UNKNOWN INDICATION
     Route: 065
  2. TECFIDERA [Suspect]
     Active Substance: DIMETHYL FUMARATE
     Indication: MULTIPLE SCLEROSIS
     Route: 048
     Dates: start: 20130801

REACTIONS (6)
  - Mobility decreased [Not Recovered/Not Resolved]
  - Multiple sclerosis [Unknown]
  - Spinal disorder [Recovered/Resolved]
  - Paralysis [Not Recovered/Not Resolved]
  - Asthenia [Recovered/Resolved]
  - Intervertebral disc compression [Not Recovered/Not Resolved]
